FAERS Safety Report 26126561 (Version 1)
Quarter: 2025Q4

REPORT INFORMATION
  Report Type: Spontaneous
  Country: US (occurrence: US)
  Receive Date: 20251205
  Receipt Date: 20251205
  Transmission Date: 20260117
  Serious: No
  Sender: STALLERGENES
  Company Number: US-STALCOR-2025-AER-03104

PATIENT
  Sex: Female

DRUGS (1)
  1. ALLERGENIC EXTRACTS [Suspect]
     Active Substance: ALLERGENIC EXTRACTS
     Indication: Product used for unknown indication
     Dosage: 1:10 CONCENTRATION
     Route: 058

REACTIONS (2)
  - Injection site bruising [Recovering/Resolving]
  - Injection site erythema [Recovering/Resolving]

NARRATIVE: CASE EVENT DATE: 20251103
